FAERS Safety Report 5020876-7 (Version None)
Quarter: 2006Q2

REPORT INFORMATION
  Report Type: 
  Country: None (occurrence: None)
  Receive Date: 20060602
  Receipt Date: 20060420
  Transmission Date: 20061013
  Serious: Yes (Death)
  Sender: FDA-Public Use
  Company Number: C-06-0020

PATIENT
  Age: 76 Year
  Sex: Male
  Weight: 79.3795 kg

DRUGS (4)
  1. MYTUSSIN DAC (8541) [Suspect]
     Indication: BRONCHITIS
     Dosage: 1-2 TSP / 2X DAY / ORAL
     Route: 048
     Dates: start: 20060101, end: 20060102
  2. ZITHROMAX [Concomitant]
  3. CHLORPROMAZINE [Concomitant]
  4. UNNAMED ANTIHYPERTENSIVE MEDICATION [Concomitant]

REACTIONS (2)
  - DRUG HYPERSENSITIVITY [None]
  - PHARMACEUTICAL PRODUCT COMPLAINT [None]
